FAERS Safety Report 6581512-1 (Version None)
Quarter: 2010Q1

REPORT INFORMATION
  Report Type: 
  Country: None (occurrence: None)
  Receive Date: 20100215
  Receipt Date: 20100210
  Transmission Date: 20100710
  Serious: Yes (Other)
  Sender: FDA-Public Use
  Company Number: D0066249A

PATIENT
  Sex: Female
  Weight: 58 kg

DRUGS (2)
  1. ARIXTRA [Suspect]
     Dosage: 7.5MG PER DAY
     Route: 065
     Dates: start: 20100106, end: 20100126
  2. BELOC ZOK [Concomitant]
     Indication: TACHYARRHYTHMIA
     Dosage: 47.5MG IN THE MORNING
     Route: 065
     Dates: start: 20050101

REACTIONS (3)
  - EPISTAXIS [None]
  - MENORRHAGIA [None]
  - THYROID HAEMORRHAGE [None]
